FAERS Safety Report 5922089-0 (Version None)
Quarter: 2008Q4

REPORT INFORMATION
  Report Type: 
  Country: None (occurrence: None)
  Receive Date: 20081017
  Receipt Date: 20081013
  Transmission Date: 20090506
  Serious: Yes (Hospitalization)
  Sender: FDA-Public Use
  Company Number: B0541964C

PATIENT
  Sex: Female
  Weight: 59 kg

DRUGS (3)
  1. LAPATINIB [Suspect]
     Indication: BREAST CANCER
     Dosage: 1250MG PER DAY
     Route: 048
     Dates: start: 20080407
  2. MYOCET [Suspect]
     Indication: BREAST CANCER
     Dosage: 60MG EVERY 3 WEEKS
     Route: 042
     Dates: start: 20080407
  3. PACLITAXEL [Suspect]
     Indication: BREAST CANCER
     Dosage: 175MG EVERY 3 WEEKS
     Route: 042
     Dates: start: 20080407

REACTIONS (5)
  - ANAEMIA [None]
  - C-REACTIVE PROTEIN INCREASED [None]
  - CYSTITIS [None]
  - HEPATIC ENZYME INCREASED [None]
  - LEUKOCYTOSIS [None]
